FAERS Safety Report 8200963-2 (Version None)
Quarter: 2012Q1

REPORT INFORMATION
  Report Type: 
  Country: None (occurrence: None)
  Receive Date: 20120312
  Receipt Date: 20111017
  Transmission Date: 20120608
  Serious: No
  Sender: FDA-Public Use
  Company Number: US-ABBOTT-11P-163-0861541-00

PATIENT
  Age: 35 Year
  Sex: Female
  Weight: 90.8 kg

DRUGS (1)
  1. LUPRON DEPOT [Suspect]
     Indication: ENDOMETRIOSIS
     Dates: start: 20100601, end: 20101001

REACTIONS (7)
  - MENORRHAGIA [None]
  - DRUG INEFFECTIVE [None]
  - DYSMENORRHOEA [None]
  - PAIN [None]
  - CONDITION AGGRAVATED [None]
  - HOT FLUSH [None]
  - INSOMNIA [None]
